FAERS Safety Report 16518254 (Version 4)
Quarter: 2020Q4

REPORT INFORMATION
  Report Type: Spontaneous
  Country: US (occurrence: US)
  Receive Date: 20190702
  Receipt Date: 20201124
  Transmission Date: 20210113
  Serious: No
  Sender: FDA-Public Use
  Company Number: US-PFIZER INC-2019278755

PATIENT
  Age: 69 Year
  Sex: Female
  Weight: 91 kg

DRUGS (5)
  1. NEURONTIN [Concomitant]
     Active Substance: GABAPENTIN
     Indication: INTERVERTEBRAL DISC DEGENERATION
  2. CELEBREX [Suspect]
     Active Substance: CELECOXIB
     Indication: PAIN
     Dosage: 200 MG, 1X/DAY (1 CAPSULE WITH FOOD ONCE A DAY)
     Route: 048
  3. TRAMADOL. [Concomitant]
     Active Substance: TRAMADOL
     Indication: PAIN
     Dosage: UNK (NOT EVERY DAY)
  4. BACLOFEN. [Concomitant]
     Active Substance: BACLOFEN
     Indication: PAIN MANAGEMENT
     Dosage: UNK
  5. NEURONTIN [Concomitant]
     Active Substance: GABAPENTIN
     Indication: PAIN MANAGEMENT
     Dosage: 600 MG, 3X/DAY (1 TABLET)
     Route: 048

REACTIONS (5)
  - Sciatica [Unknown]
  - Intentional product misuse [Unknown]
  - Back pain [Unknown]
  - Disturbance in attention [Unknown]
  - Confusional state [Unknown]
